FAERS Safety Report 6073086-9 (Version None)
Quarter: 2009Q1

REPORT INFORMATION
  Report Type: 
  Country: None (occurrence: None)
  Receive Date: 20090211
  Receipt Date: 20090206
  Transmission Date: 20090719
  Serious: Yes (Hospitalization)
  Sender: FDA-Public Use
  Company Number: FR-WYE-G03075309

PATIENT
  Sex: Male

DRUGS (4)
  1. ADVIL [Suspect]
     Indication: PYREXIA
     Dosage: UNKNOWN
     Route: 048
     Dates: start: 20081223, end: 20090102
  2. CLARITHROMYCIN [Concomitant]
     Indication: PYREXIA
     Dosage: UNKNOWN
     Route: 048
     Dates: start: 20080101
  3. CLARITHROMYCIN [Concomitant]
     Indication: COUGH
  4. DOLIPRANE [Concomitant]
     Indication: PYREXIA
     Dosage: UNKNOWN
     Route: 048
     Dates: start: 20081223

REACTIONS (7)
  - ATELECTASIS [None]
  - CONDITION AGGRAVATED [None]
  - INFECTION [None]
  - INFLAMMATION [None]
  - LOBAR PNEUMONIA [None]
  - PLEURAL EFFUSION [None]
  - STREPTOCOCCAL INFECTION [None]
